FAERS Safety Report 9260843 (Version 1)
Quarter: 2013Q2

REPORT INFORMATION
  Report Type: Spontaneous
  Country: US (occurrence: US)
  Receive Date: 20130429
  Receipt Date: 20130429
  Transmission Date: 20140414
  Serious: Yes (Other)
  Sender: FDA-Public Use
  Company Number: US-PFIZER INC-2013132937

PATIENT
  Age: 52 Year
  Sex: Female
  Weight: 40.8 kg

DRUGS (3)
  1. OXYCODONE HYDROCHLORIDE [Suspect]
     Indication: PAIN
     Dosage: 10 MG, DAILY
     Dates: start: 2007, end: 2007
  2. HYDROCODONE [Suspect]
     Indication: PAIN
     Dosage: 7.5 MG, DAILY
     Dates: start: 2007
  3. VICODIN [Suspect]
     Indication: PAIN
     Dosage: ^5.5MG^ AS FOUR TO FIVE TABLET AS NEEDED
     Dates: start: 2007

REACTIONS (3)
  - Back disorder [Unknown]
  - Fall [Unknown]
  - Drug ineffective [Unknown]
